FAERS Safety Report 13673930 (Version 2)
Quarter: 2017Q2

REPORT INFORMATION
  Report Type: Spontaneous
  Country: US (occurrence: US)
  Receive Date: 20170621
  Receipt Date: 20170626
  Transmission Date: 20170830
  Serious: Yes (Hospitalization, Other)
  Sender: FDA-Public Use
  Company Number: US-PFIZER INC-2017270052

PATIENT
  Age: 56 Year
  Sex: Female
  Weight: 100 kg

DRUGS (9)
  1. ELIQUIS [Concomitant]
     Active Substance: APIXABAN
     Indication: CEREBROVASCULAR ACCIDENT PROPHYLAXIS
  2. INVOKAMET [Concomitant]
     Active Substance: CANAGLIFLOZIN\METFORMIN HYDROCHLORIDE
     Indication: DIABETES MELLITUS
     Dosage: [CANAGLIFLOZIN 150MG]/[METFORMIN HYDROCHLORIDE 1000MG], 2X/DAY
     Route: 048
     Dates: start: 2016
  3. ELIQUIS [Concomitant]
     Active Substance: APIXABAN
     Indication: ANTICOAGULANT THERAPY
     Dosage: 5 MG, 2X/DAY
     Route: 048
     Dates: start: 2016
  4. DILTIAZEM. [Concomitant]
     Active Substance: DILTIAZEM
     Indication: HEART RATE IRREGULAR
  5. SOTALOL. [Concomitant]
     Active Substance: SOTALOL
     Indication: BLOOD PRESSURE ABNORMAL
     Dosage: 160 MG, 2X/DAY
     Route: 048
     Dates: end: 201704
  6. LORAZEPAM. [Concomitant]
     Active Substance: LORAZEPAM
     Indication: PSYCHOMOTOR HYPERACTIVITY
     Dosage: 2MG TABLET, 1/2 TO 1 TABLET, 2X/DAY
     Route: 048
  7. LYRICA [Suspect]
     Active Substance: PREGABALIN
     Indication: DIABETIC NEUROPATHY
     Dosage: 75 MG, 2X/DAY
     Route: 048
     Dates: start: 2015, end: 20170615
  8. DILTIAZEM. [Concomitant]
     Active Substance: DILTIAZEM
     Indication: BLOOD PRESSURE ABNORMAL
     Dosage: 350 MG, DAILY
     Route: 048
     Dates: end: 201704
  9. SOTALOL. [Concomitant]
     Active Substance: SOTALOL
     Indication: HEART RATE IRREGULAR

REACTIONS (15)
  - Bronchitis [Unknown]
  - Burning sensation [Unknown]
  - Hypoaesthesia [Unknown]
  - Atrial fibrillation [Unknown]
  - Malaise [Unknown]
  - Cough [Unknown]
  - Pneumonia [Recovered/Resolved with Sequelae]
  - Heart rate irregular [Recovered/Resolved]
  - Paraesthesia [Unknown]
  - Chest pain [Unknown]
  - Pain in extremity [Unknown]
  - Condition aggravated [Unknown]
  - Lung infection [Unknown]
  - Musculoskeletal pain [Unknown]
  - Haemoptysis [Unknown]

NARRATIVE: CASE EVENT DATE: 20170201
